FAERS Safety Report 7897428-4 (Version None)
Quarter: 2011Q4

REPORT INFORMATION
  Report Type: 
  Country: None (occurrence: None)
  Receive Date: 20111107
  Receipt Date: 20111101
  Transmission Date: 20120403
  Serious: Yes (Other)
  Sender: FDA-Public Use
  Company Number: US-AMGEN-USASP2010002703

PATIENT
  Age: 66 Year
  Sex: Female

DRUGS (6)
  1. GABAPENTIN [Concomitant]
  2. DIOVAN [Concomitant]
     Indication: HYPERTENSION
  3. INFLUENZA VACCINE [Concomitant]
     Dates: start: 20101010, end: 20101010
  4. PROLIA [Suspect]
     Indication: OSTEOPOROSIS POSTMENOPAUSAL
     Dosage: 60 MG, Q6MO
     Route: 058
     Dates: start: 20100922
  5. HUMIRA [Concomitant]
     Indication: RHEUMATOID ARTHRITIS
     Dosage: UNK
     Dates: start: 20100901
  6. CYMBALTA [Concomitant]

REACTIONS (6)
  - NECK PAIN [None]
  - MALAISE [None]
  - PAIN IN EXTREMITY [None]
  - PAIN [None]
  - MYALGIA [None]
  - OEDEMA PERIPHERAL [None]
